FAERS Safety Report 6038474-5 (Version None)
Quarter: 2009Q1

REPORT INFORMATION
  Report Type: 
  Country: None (occurrence: None)
  Receive Date: 20090113
  Receipt Date: 20090113
  Transmission Date: 20090719
  Serious: Yes (Hospitalization)
  Sender: FDA-Public Use
  Company Number: None

PATIENT
  Sex: Female
  Weight: 78 kg

DRUGS (1)
  1. FEMARA [Suspect]
     Dosage: 2.5 MG

REACTIONS (6)
  - ALCOHOL USE [None]
  - BLOOD PRESSURE SYSTOLIC INCREASED [None]
  - HYPOGLYCAEMIA [None]
  - LEUKOCYTOSIS [None]
  - PYREXIA [None]
  - RESPIRATORY RATE INCREASED [None]
